FAERS Safety Report 9091210 (Version 7)
Quarter: 2014Q3

REPORT INFORMATION
  Report Type: Spontaneous
  Country: US (occurrence: US)
  Receive Date: 20130218
  Receipt Date: 20140808
  Transmission Date: 20150326
  Serious: Yes (Hospitalization, Other)
  Sender: FDA-Public Use
  Company Number: US-009507513-1302USA007766

PATIENT
  Sex: Female
  Weight: 89.5 kg

DRUGS (5)
  1. CENTRUM (MINERALS (UNSPECIFIED) (+) VITAMINS (UNSPECIFIED)) [Concomitant]
     Dosage: 1500 MG, QD
     Dates: start: 1995
  2. FOSAMAX [Suspect]
     Active Substance: ALENDRONATE SODIUM
     Indication: OSTEOPOROSIS
     Dosage: 70 MG, QW
     Route: 048
     Dates: start: 20021104
  3. ALENDRONATE SODIUM. [Suspect]
     Active Substance: ALENDRONATE SODIUM
     Indication: OSTEOPOROSIS
     Dosage: 70 MG, UNK
     Route: 048
     Dates: start: 20080204, end: 20110228
  4. FOSAMAX PLUS D [Suspect]
     Active Substance: ALENDRONATE SODIUM\CHOLECALCIFEROL
     Indication: OSTEOPOROSIS
     Route: 048
  5. ALENDRONATE SODIUM. [Suspect]
     Active Substance: ALENDRONATE SODIUM
     Indication: OSTEOPOROSIS
     Dosage: 70 MG, QW
     Route: 048
     Dates: start: 20080204, end: 20090507

REACTIONS (19)
  - Hypertension [Unknown]
  - Arthralgia [Unknown]
  - Gastrooesophageal reflux disease [Unknown]
  - Femur fracture [Unknown]
  - Low turnover osteopathy [Unknown]
  - Arthropathy [Unknown]
  - Adverse event [Unknown]
  - Spinal osteoarthritis [Unknown]
  - Herpes zoster [Unknown]
  - Blood potassium abnormal [Unknown]
  - Oophorectomy bilateral [Unknown]
  - Hypercholesterolaemia [Unknown]
  - Infection [Unknown]
  - Open reduction of fracture [Unknown]
  - Hysterectomy [Unknown]
  - Osteoarthritis [Unknown]
  - Osteitis [Unknown]
  - Nephrolithiasis [Unknown]
  - Pain in extremity [Unknown]

NARRATIVE: CASE EVENT DATE: 2003
